FAERS Safety Report 21508529 (Version 2)
Quarter: 2022Q4

REPORT INFORMATION
  Report Type: Spontaneous
  Country: US (occurrence: US)
  Receive Date: 20221026
  Receipt Date: 20221214
  Transmission Date: 20230112
  Serious: No
  Sender: FDA-Public Use
  Company Number: US-SA-2022SA431711

PATIENT
  Age: 50 Year
  Sex: Male
  Weight: 102 kg

DRUGS (10)
  1. FABRAZYME [Suspect]
     Active Substance: AGALSIDASE BETA
     Indication: Fabry^s disease
     Dosage: 100 MG, QOW
     Route: 042
     Dates: start: 20210526
  2. FABRAZYME [Suspect]
     Active Substance: AGALSIDASE BETA
     Dosage: 1 MG/KG
     Route: 042
  3. LISINOPRIL [Concomitant]
     Active Substance: LISINOPRIL
  4. SODIUM CHLORIDE [Concomitant]
     Active Substance: SODIUM CHLORIDE
  5. DIPHENHYDRAMINE [Concomitant]
     Active Substance: DIPHENHYDRAMINE
  6. TRAMADOL HCL [Concomitant]
     Active Substance: TRAMADOL HYDROCHLORIDE
  7. SODIUM CHLORIDE [Concomitant]
     Active Substance: SODIUM CHLORIDE
  8. CLARITHROMYCIN [Concomitant]
     Active Substance: CLARITHROMYCIN
  9. EPINEPHRINE [Concomitant]
     Active Substance: EPINEPHRINE
  10. STERILE WATER [Concomitant]
     Active Substance: WATER

REACTIONS (1)
  - SARS-CoV-2 test positive [Unknown]

NARRATIVE: CASE EVENT DATE: 20221011
